FAERS Safety Report 15933690 (Version 2)
Quarter: 2019Q2

REPORT INFORMATION
  Report Type: Spontaneous
  Country: US (occurrence: US)
  Receive Date: 20190207
  Receipt Date: 20190430
  Transmission Date: 20190711
  Serious: Yes (Hospitalization, Other)
  Sender: FDA-Public Use
  Company Number: US-009507513-1902USA001983

PATIENT
  Sex: Female

DRUGS (2)
  1. ANALGESIC (UNSPECIFIED) [Concomitant]
     Active Substance: UNSPECIFIED INGREDIENT
     Dosage: UNK
  2. JANUVIA [Suspect]
     Active Substance: SITAGLIPTIN PHOSPHATE
     Indication: DIABETES MELLITUS
     Dosage: 1 TABLET ONCE A DAY
     Route: 048
     Dates: start: 201401

REACTIONS (5)
  - Back pain [Not Recovered/Not Resolved]
  - Arthritis [Unknown]
  - Diarrhoea [Not Recovered/Not Resolved]
  - Rectocele [Unknown]
  - Abdominal pain upper [Not Recovered/Not Resolved]
